FAERS Safety Report 18664340 (Version 1)
Quarter: 2020Q4

REPORT INFORMATION
  Report Type: Spontaneous
  Country: DE (occurrence: DE)
  Receive Date: 20201225
  Receipt Date: 20201225
  Transmission Date: 20210114
  Serious: Yes (Death, Hospitalization)
  Sender: FDA-Public Use
  Company Number: DE-BAUSCH-BL-2020-037382

PATIENT
  Sex: Male

DRUGS (2)
  1. PREDNISOLONE. [Suspect]
     Active Substance: PREDNISOLONE
     Indication: PNEUMONITIS
     Dosage: UNK
     Route: 065
  2. POTELIGEO [Suspect]
     Active Substance: MOGAMULIZUMAB-KPKC
     Indication: CUTANEOUS T-CELL LYMPHOMA STAGE IV
     Dosage: 1MG/KG/BODY WEIGHT OVER 3 FULL CYCLES
     Route: 065
     Dates: start: 202007, end: 20200813

REACTIONS (4)
  - Bronchopulmonary aspergillosis [Fatal]
  - Pneumonitis [Fatal]
  - COVID-19 pneumonia [Fatal]
  - Pneumonia cytomegaloviral [Fatal]

NARRATIVE: CASE EVENT DATE: 20200813
